FAERS Safety Report 20988396 (Version 1)
Quarter: 2022Q2

REPORT INFORMATION
  Report Type: Spontaneous
  Country: US (occurrence: None)
  Receive Date: 20220620
  Receipt Date: 20220620
  Transmission Date: 20220721
  Serious: Yes (unspecified)
  Sender: FDA-Public Use
  Company Number: None

PATIENT
  Age: 77 Year
  Sex: Male

DRUGS (10)
  1. INBRIJA [Suspect]
     Active Substance: LEVODOPA
     Indication: Parkinson^s disease
     Dosage: FREQUENCY : DAILY;?
     Route: 048
     Dates: start: 20220530, end: 20220530
  2. PROBIOTIC [Concomitant]
  3. ATORVASTATIN [Concomitant]
  4. AZILECT [Concomitant]
  5. CLOPIDOGREL [Concomitant]
  6. FOLIC ACID [Concomitant]
  7. VITAMINS [Concomitant]
     Active Substance: VITAMINS
  8. SINEMET [Concomitant]
  9. TOPROL XL [Concomitant]
  10. VITAMIN D [Concomitant]

REACTIONS (2)
  - Muscular weakness [None]
  - Unresponsive to stimuli [None]

NARRATIVE: CASE EVENT DATE: 20220530
